FAERS Safety Report 7639812-X (Version None)
Quarter: 2011Q3

REPORT INFORMATION
  Report Type: 
  Country: None (occurrence: None)
  Receive Date: 20110727
  Receipt Date: 20110722
  Transmission Date: 20111222
  Serious: No
  Sender: FDA-Public Use
  Company Number: US-PFIZER INC-2011144025

PATIENT
  Sex: Female

DRUGS (2)
  1. LYRICA [Suspect]
     Dosage: UNK
  2. ERTACZO [Suspect]
     Dosage: 2 %, APPLY 2 X SPD

REACTIONS (6)
  - URTICARIA [None]
  - RASH PRURITIC [None]
  - BLISTER [None]
  - HYPERSENSITIVITY [None]
  - OEDEMA PERIPHERAL [None]
  - DYSPHAGIA [None]
